FAERS Safety Report 10403804 (Version 4)
Quarter: 2014Q4

REPORT INFORMATION
  Report Type: Report from Study
  Country: US (occurrence: US)
  Receive Date: 20140822
  Receipt Date: 20141222
  Transmission Date: 20150528
  Serious: Yes (Hospitalization, Disabling, Other)
  Sender: FDA-Public Use
  Company Number: US-009507513-1408USA011612

PATIENT
  Age: 4 Year
  Sex: Female
  Weight: 12.4 kg

DRUGS (12)
  1. ZOFRAN [Concomitant]
     Active Substance: ONDANSETRON HYDROCHLORIDE
     Indication: NAUSEA
     Dosage: 1.86 MG, Q8H
     Route: 042
     Dates: start: 20140814
  2. IOBENGUANE I 131 [Suspect]
     Active Substance: IOBENGUANE
     Indication: NEUROBLASTOMA RECURRENT
     Dosage: 239 MCI, ONCE (18MCI/KG/ONCE)
     Route: 042
     Dates: start: 20140814, end: 20140814
  3. MORPHINE [Concomitant]
     Active Substance: MORPHINE
     Indication: PAIN
     Dosage: 3.78 MG, UEVERY 4 HOURS PRN PAIN; DOSE RANGE 3.78-6.3 MG PER DOSE PO
     Route: 048
     Dates: start: 20140813, end: 20140827
  4. VORINOSTAT [Suspect]
     Active Substance: VORINOSTAT
     Indication: NEUROBLASTOMA RECURRENT
     Dosage: 100 MG, QD (180 MG/M2/DAY)
     Route: 048
     Dates: start: 20140812, end: 20140817
  5. SEPTRA [Concomitant]
     Active Substance: SULFAMETHOXAZOLE\TRIMETHOPRIM
     Indication: ANTIBIOTIC PROPHYLAXIS
  6. SCOPOLAMINE [Concomitant]
     Active Substance: SCOPOLAMINE
     Indication: NAUSEA
     Dosage: 1.5 MG, Q72H
     Route: 062
     Dates: start: 20140813, end: 20140818
  7. CHOLECALCIFEROL [Concomitant]
     Active Substance: CHOLECALCIFEROL
     Indication: ROUTINE HEALTH MAINTENANCE
     Dosage: DOSE 1000 OTHER, QD
     Route: 048
     Dates: start: 20140813, end: 20140817
  8. COLACE [Concomitant]
     Active Substance: DOCUSATE SODIUM
     Indication: CONSTIPATION
     Dosage: 50 MG, PRN
     Dates: start: 20140813
  9. OXYBUTIN [Concomitant]
     Active Substance: OXYBUTYNIN
     Indication: BLADDER SPASM
     Dosage: 2.5 MG, TID
     Route: 048
     Dates: start: 20140813, end: 20140817
  10. POTASSIUM IODIDE [Concomitant]
     Active Substance: POTASSIUM IODIDE
     Indication: PROPHYLAXIS
     Dosage: 12.35 MG, QD
     Route: 048
     Dates: start: 20140814
  11. SEPTRA [Concomitant]
     Active Substance: SULFAMETHOXAZOLE\TRIMETHOPRIM
     Indication: ANTIBIOTIC PROPHYLAXIS
     Dosage: 31.52 MG, BID
     Route: 048
     Dates: start: 20140816, end: 20140817
  12. ENULOSE [Concomitant]
     Active Substance: LACTULOSE
     Indication: CONSTIPATION
     Dosage: 5 G, QD
     Route: 048
     Dates: start: 20140815

REACTIONS (1)
  - Optic nerve disorder [Not Recovered/Not Resolved]

NARRATIVE: CASE EVENT DATE: 20140817
